FAERS Safety Report 17948886 (Version 1)
Quarter: 2020Q2

REPORT INFORMATION
  Report Type: Spontaneous
  Country: US (occurrence: US)
  Receive Date: 20200625
  Receipt Date: 20200625
  Transmission Date: 20200714
  Serious: No
  Sender: FDA-Public Use
  Company Number: US-ROCHE-2354507

PATIENT
  Sex: Female

DRUGS (18)
  1. DITROPAN [Concomitant]
     Active Substance: OXYBUTYNIN CHLORIDE
  2. RISPERDAL [Concomitant]
     Active Substance: RISPERIDONE
  3. ADEMPAS [Concomitant]
     Active Substance: RIOCIGUAT
  4. LIPITOR [Concomitant]
     Active Substance: ATORVASTATIN CALCIUM
  5. CATAPRES [Concomitant]
     Active Substance: CLONIDINE HYDROCHLORIDE
  6. LEXAPRO [Concomitant]
     Active Substance: ESCITALOPRAM OXALATE
  7. LASIX [Concomitant]
     Active Substance: FUROSEMIDE
  8. GLUCOPHAGE [Concomitant]
     Active Substance: METFORMIN HYDROCHLORIDE
  9. VALTREX [Concomitant]
     Active Substance: VALACYCLOVIR HYDROCHLORIDE
  10. METOLAZONE. [Concomitant]
     Active Substance: METOLAZONE
  11. PRILOSEC [Concomitant]
     Active Substance: OMEPRAZOLE MAGNESIUM
  12. ZOCOR [Concomitant]
     Active Substance: SIMVASTATIN
  13. TOPAMAX [Concomitant]
     Active Substance: TOPIRAMATE
  14. KLONOPIN [Suspect]
     Active Substance: CLONAZEPAM
     Indication: PRODUCT USED FOR UNKNOWN INDICATION
     Route: 065
  15. ELIQUIS [Concomitant]
     Active Substance: APIXABAN
  16. VIMPAT [Concomitant]
     Active Substance: LACOSAMIDE
  17. ZOFRAN [Concomitant]
     Active Substance: ONDANSETRON HYDROCHLORIDE
  18. TYVASO [Concomitant]
     Active Substance: TREPROSTINIL

REACTIONS (4)
  - Hypotension [Recovered/Resolved]
  - Weight decreased [Recovered/Resolved]
  - Dehydration [Recovered/Resolved]
  - Dizziness [Not Recovered/Not Resolved]
